FAERS Safety Report 9383006 (Version 1)
Quarter: 2013Q3

REPORT INFORMATION
  Report Type: Report from Study
  Country: US (occurrence: US)
  Receive Date: 20130703
  Receipt Date: 20130703
  Transmission Date: 20140515
  Serious: Yes (Death)
  Sender: FDA-Public Use
  Company Number: US-ROCHE-1244718

PATIENT
  Age: 73 Year
  Sex: Female

DRUGS (1)
  1. XELODA [Suspect]
     Indication: LARYNGEAL CANCER
     Dosage: 14 DAYS ON  AND 7 DAYS OFF.
     Route: 065

REACTIONS (1)
  - Death [Fatal]
